FAERS Safety Report 8828008 (Version 1)
Quarter: 2012Q4

REPORT INFORMATION
  Report Type: 
  Country: IT (occurrence: IT)
  Receive Date: 20121005
  Receipt Date: 20121005
  Transmission Date: 20130627
  Serious: Yes (Hospitalization)
  Sender: FDA-Public Use
  Company Number: IT-MPIJNJ-2012-06753

PATIENT

DRUGS (5)
  1. VELCADE [Suspect]
     Indication: MULTIPLE MYELOMA
     Dosage: 2.16 mg, UNK
     Route: 042
     Dates: start: 20111219, end: 20111222
  2. ALLOPURINOL [Concomitant]
     Dosage: 300 mg, UNK
     Route: 048
     Dates: start: 20111214
  3. ZANEDIP [Concomitant]
     Dosage: 10 mg, UNK
     Route: 048
  4. BISOPROLOL FUMARATE [Concomitant]
     Dosage: 1.25 mg, UNK
     Route: 048
  5. EUTIROX                            /00068001/ [Concomitant]
     Dosage: 50 g, UNK

REACTIONS (2)
  - Vasculitis necrotising [Recovered/Resolved]
  - Genital herpes [Recovered/Resolved]
